FAERS Safety Report 16369202 (Version 4)
Quarter: 2019Q2

REPORT INFORMATION
  Report Type: Spontaneous
  Country: US (occurrence: US)
  Receive Date: 20190529
  Receipt Date: 20190614
  Transmission Date: 20190711
  Serious: Yes (Other)
  Sender: FDA-Public Use
  Company Number: US-GLAXOSMITHKLINE-US2019AMR084965

PATIENT
  Sex: Female

DRUGS (1)
  1. NUCALA [Suspect]
     Active Substance: MEPOLIZUMAB
     Indication: ASTHMA
     Dosage: 100 MG, CYC
     Route: 058

REACTIONS (6)
  - Suicidal ideation [Recovered/Resolved]
  - Self-injurious ideation [Recovered/Resolved]
  - Dyspnoea [Unknown]
  - Flashback [Recovered/Resolved]
  - Thinking abnormal [Recovered/Resolved]
  - Crying [Recovered/Resolved]
